FAERS Safety Report 22636420 (Version 2)
Quarter: 2025Q1

REPORT INFORMATION
  Report Type: Spontaneous
  Country: US (occurrence: US)
  Receive Date: 20230623
  Receipt Date: 20250107
  Transmission Date: 20250409
  Serious: No
  Sender: MERCK
  Company Number: US-009507513-2306USA010226

PATIENT
  Sex: Male

DRUGS (2)
  1. KEYTRUDA [Suspect]
     Active Substance: PEMBROLIZUMAB
     Indication: Astrocytoma
  2. LOMUSTINE [Concomitant]
     Active Substance: LOMUSTINE
     Indication: Astrocytoma

REACTIONS (1)
  - Product use in unapproved indication [Unknown]
